FAERS Safety Report 17698243 (Version 5)
Quarter: 2021Q4

REPORT INFORMATION
  Report Type: Spontaneous
  Country: US (occurrence: US)
  Receive Date: 20200423
  Receipt Date: 20211222
  Transmission Date: 20220303
  Serious: Yes (Other)
  Sender: FDA-Public Use
  Company Number: US-PFIZER INC-2020159739

PATIENT
  Age: 68 Year
  Sex: Female
  Weight: 67.59 kg

DRUGS (3)
  1. XELJANZ XR [Suspect]
     Active Substance: TOFACITINIB CITRATE
     Indication: Rheumatoid arthritis
     Dosage: 11 MG, 1X/DAY
     Route: 048
     Dates: start: 201911
  2. PREDNISONE [Concomitant]
     Active Substance: PREDNISONE
     Indication: Rheumatoid arthritis
     Dosage: 2.5 MG, 1X/DAY (ONCE DAILY AND WEANING OFF)
     Dates: start: 201811
  3. LEFLUNOMIDE [Concomitant]
     Active Substance: LEFLUNOMIDE
     Indication: Rheumatoid arthritis
     Dosage: 20 MG, DAILY
     Dates: start: 201811

REACTIONS (13)
  - Spinal operation [Unknown]
  - Drug ineffective [Unknown]
  - Anxiety [Unknown]
  - Arthralgia [Unknown]
  - Dizziness [Recovering/Resolving]
  - Fatigue [Recovering/Resolving]
  - Pain [Recovering/Resolving]
  - Condition aggravated [Unknown]
  - Therapeutic response unexpected [Recovering/Resolving]
  - Hair colour changes [Recovering/Resolving]
  - Weight increased [Unknown]
  - Stress [Unknown]
  - Depressed mood [Unknown]

NARRATIVE: CASE EVENT DATE: 20200301
